FAERS Safety Report 10133588 (Version 1)
Quarter: 2014Q2

REPORT INFORMATION
  Report Type: Other
  Country: GB (occurrence: GB)
  Receive Date: 20140428
  Receipt Date: 20140428
  Transmission Date: 20141212
  Serious: Yes (Hospitalization)
  Sender: FDA-Public Use
  Company Number: GB-PERRIGO-14GB004171

PATIENT
  Age: 27 Year
  Sex: Female
  Weight: 96 kg

DRUGS (6)
  1. NAPROXEN 250MG 16028/0144 [Suspect]
     Indication: PAIN
     Dosage: 500 MG, BID
     Route: 048
     Dates: start: 20140402, end: 20140405
  2. NAPROXEN 250MG 16028/0144 [Suspect]
     Indication: INTERVERTEBRAL DISC PROTRUSION
  3. DALTEPARIN [Suspect]
     Indication: THROMBOSIS PROPHYLAXIS
     Dosage: 7500 IU, QD
     Route: 058
     Dates: start: 20140225, end: 20140408
  4. FLUCLOXACILLIN [Suspect]
     Indication: PROPHYLAXIS
     Dosage: 1 G, QD
     Route: 048
     Dates: start: 20140301, end: 20140307
  5. FERROUS SULPHATE                   /00023503/ [Concomitant]
     Indication: PRODUCT USED FOR UNKNOWN INDICATION
     Dosage: 200 MG, TID
     Route: 048
     Dates: end: 20140407
  6. OMEPRAZOLE [Concomitant]
     Indication: PROPHYLAXIS
     Dosage: 10 MG, QD
     Route: 048
     Dates: start: 20140402, end: 20140404

REACTIONS (2)
  - Abdominal pain [Unknown]
  - Liver function test abnormal [Not Recovered/Not Resolved]
